FAERS Safety Report 14453539 (Version 2)
Quarter: 2018Q1

REPORT INFORMATION
  Report Type: Spontaneous
  Country: PE (occurrence: PE)
  Receive Date: 20180129
  Receipt Date: 20180202
  Transmission Date: 20180509
  Serious: Yes (Death, Hospitalization)
  Sender: FDA-Public Use
  Company Number: PE-BIOMARINAP-PE-2018-116894

PATIENT
  Age: 5 Year
  Sex: Male

DRUGS (1)
  1. ALDURAZYME [Suspect]
     Active Substance: LARONIDASE
     Indication: MUCOPOLYSACCHARIDOSIS I
     Dosage: 9.89 MG, UNK
     Route: 041
     Dates: start: 20150911, end: 20151214

REACTIONS (3)
  - Increased bronchial secretion [Unknown]
  - Respiratory arrest [Fatal]
  - Respiratory disorder [Unknown]

NARRATIVE: CASE EVENT DATE: 20180122
